FAERS Safety Report 7972453-3 (Version None)
Quarter: 2011Q4

REPORT INFORMATION
  Report Type: 
  Country: None (occurrence: None)
  Receive Date: 20111213
  Receipt Date: 20111208
  Transmission Date: 20120403
  Serious: No
  Sender: FDA-Public Use
  Company Number: US-BIOGENIDEC-2011BI046802

PATIENT
  Age: 54 Year
  Sex: Female

DRUGS (1)
  1. TYSABRI [Suspect]
     Indication: MULTIPLE SCLEROSIS
     Route: 042
     Dates: start: 20100804, end: 20111102

REACTIONS (5)
  - POLLAKIURIA [None]
  - DEHYDRATION [None]
  - HEART RATE INCREASED [None]
  - DIZZINESS [None]
  - HYPOTENSION [None]
